FAERS Safety Report 22520422 (Version 8)
Quarter: 2025Q1

REPORT INFORMATION
  Report Type: Report from Study
  Country: JP (occurrence: JP)
  Receive Date: 20230605
  Receipt Date: 20250312
  Transmission Date: 20250409
  Serious: Yes (Hospitalization, Other)
  Sender: ABBVIE
  Company Number: JP-TAKEDA-2023TJP006853

PATIENT
  Age: 79 Year
  Sex: Male
  Weight: 40.4 kg

DRUGS (17)
  1. LEUPROLIDE ACETATE [Suspect]
     Active Substance: LEUPROLIDE ACETATE
     Indication: Bulbospinal muscular atrophy congenital
     Dosage: 11.25 MILLIGRAM, EVERY 3 MONTHS
     Route: 058
     Dates: start: 20180123, end: 20221201
  2. BIO-THREE [Concomitant]
     Active Substance: HERBALS
     Indication: Product used for unknown indication
     Route: 065
     Dates: start: 20180710, end: 20190122
  3. SODIUM PICOSULFATE [Concomitant]
     Active Substance: SODIUM PICOSULFATE
     Indication: Constipation
     Route: 065
     Dates: start: 20180909, end: 20201027
  4. CARBOCYSTEINE [Concomitant]
     Active Substance: CARBOCYSTEINE
     Indication: Bronchitis chronic
     Route: 065
     Dates: start: 20221201, end: 20230105
  5. AMLODIPINE [Concomitant]
     Active Substance: AMLODIPINE BESYLATE
     Indication: Hypertension
     Route: 065
     Dates: start: 20210216, end: 20220715
  6. AMLODIPINE [Concomitant]
     Active Substance: AMLODIPINE BESYLATE
     Indication: Hypertension
     Route: 065
     Dates: start: 20220716, end: 20240808
  7. MAGNESIUM OXIDE [Concomitant]
     Active Substance: MAGNESIUM OXIDE
     Indication: Constipation
     Route: 065
  8. TIZANIDINE [Concomitant]
     Active Substance: TIZANIDINE
     Indication: Spinal osteoarthritis
     Route: 065
     Dates: start: 20190521, end: 20240508
  9. TRIAZOLAM [Concomitant]
     Active Substance: TRIAZOLAM
     Indication: Insomnia
     Route: 065
     Dates: end: 20180710
  10. TRIAZOLAM [Concomitant]
     Active Substance: TRIAZOLAM
     Indication: Insomnia
     Route: 065
     Dates: start: 20190122, end: 20230720
  11. AMITIZA [Concomitant]
     Active Substance: LUBIPROSTONE
     Indication: Product used for unknown indication
     Route: 065
     Dates: start: 20200707, end: 20210216
  12. CILOSTAZOL [Concomitant]
     Active Substance: CILOSTAZOL
     Indication: Product used for unknown indication
     Route: 065
     Dates: end: 20220728
  13. CLONAZEPAM [Concomitant]
     Active Substance: CLONAZEPAM
     Indication: Insomnia
     Route: 065
     Dates: end: 20180710
  14. ACTONEL [Concomitant]
     Active Substance: RISEDRONATE SODIUM
     Indication: Osteoporosis
     Route: 065
     Dates: start: 20220708, end: 20220728
  15. MINODRONIC ACID [Concomitant]
     Active Substance: MINODRONIC ACID
     Indication: Osteoporosis
     Route: 065
     Dates: start: 20220818, end: 20241031
  16. ALFACALCIDOL [Concomitant]
     Active Substance: ALFACALCIDOL
     Indication: Osteoporosis
     Route: 065
     Dates: start: 20220708, end: 20241031
  17. ASPIRIN [Concomitant]
     Active Substance: ASPIRIN
     Indication: Product used for unknown indication
     Route: 065
     Dates: start: 20220818, end: 20241031

REACTIONS (4)
  - Pleurisy [Recovered/Resolved]
  - Hypertension [Recovering/Resolving]
  - Pneumonia [Recovering/Resolving]
  - Pneumonia [Recovering/Resolving]

NARRATIVE: CASE EVENT DATE: 20210330
